FAERS Safety Report 17243967 (Version 1)
Quarter: 2020Q1

REPORT INFORMATION
  Report Type: Spontaneous
  Country: US (occurrence: US)
  Receive Date: 20200107
  Receipt Date: 20200107
  Transmission Date: 20200409
  Serious: No
  Sender: FDA-Public Use
  Company Number: US-BEH-2019110990

PATIENT
  Sex: Female

DRUGS (1)
  1. PRIVIGEN [Suspect]
     Active Substance: HUMAN IMMUNOGLOBULIN G
     Indication: POLYNEUROPATHY IDIOPATHIC PROGRESSIVE
     Dosage: 30 GRAM, DAILY FOR 4 DAYS EVERY 4 WEEKS
     Route: 042
     Dates: start: 20190612

REACTIONS (3)
  - Headache [Unknown]
  - No adverse event [Unknown]
  - Product use in unapproved indication [Unknown]
